FAERS Safety Report 8015370-5 (Version None)
Quarter: 2011Q4

REPORT INFORMATION
  Report Type: 
  Country: None (occurrence: None)
  Receive Date: 20111230
  Receipt Date: 20111221
  Transmission Date: 20120403
  Serious: Yes (Other)
  Sender: FDA-Public Use
  Company Number: US-PERRIGO-11US011237

PATIENT
  Sex: Male
  Weight: 11.338 kg

DRUGS (2)
  1. ACETAMINOPHEN [Suspect]
     Indication: ACCIDENTAL EXPOSURE
     Dosage: ONE DOSE AT 1300 HOURS
     Route: 048
     Dates: start: 20111220, end: 20111220
  2. ACETAMINOPHEN [Suspect]
     Indication: NASOPHARYNGITIS
     Dosage: THREE DOSE CUPS, ONCE
     Route: 048
     Dates: start: 20111221, end: 20111221

REACTIONS (2)
  - ACCIDENTAL OVERDOSE [None]
  - SOMNOLENCE [None]
